FAERS Safety Report 6130137-0 (Version None)
Quarter: 2009Q1

REPORT INFORMATION
  Report Type: 
  Country: None (occurrence: None)
  Receive Date: 20090324
  Receipt Date: 20090311
  Transmission Date: 20090719
  Serious: Yes (Life-Threatening, Hospitalization)
  Sender: FDA-Public Use
  Company Number: FR-AMGEN-UK331629

PATIENT
  Sex: Male
  Weight: 100 kg

DRUGS (14)
  1. ROMIPLOSTIM [Suspect]
     Indication: IDIOPATHIC THROMBOCYTOPENIC PURPURA
     Route: 058
     Dates: start: 20081201
  2. ALDACTONE [Concomitant]
     Route: 048
     Dates: start: 20050101
  3. LASIX [Concomitant]
     Route: 048
     Dates: start: 20050101
  4. CALCITE [Concomitant]
     Route: 048
     Dates: start: 20080101
  5. ACTONEL [Concomitant]
     Route: 048
     Dates: start: 20080101
  6. KARDEGIC [Concomitant]
     Route: 048
     Dates: start: 20050101
  7. SYMBICORT [Concomitant]
     Route: 055
     Dates: start: 20050101
  8. INIPOMP [Concomitant]
     Route: 048
     Dates: start: 20060101
  9. ELISOR [Concomitant]
  10. GARDENAL [Concomitant]
  11. TRAMADOL HCL [Concomitant]
  12. DIPROSONE [Concomitant]
     Route: 061
  13. SINTROM [Concomitant]
  14. INNOHEP [Concomitant]

REACTIONS (1)
  - ATRIOVENTRICULAR BLOCK COMPLETE [None]
